FAERS Safety Report 6396855-4 (Version None)
Quarter: 2009Q4

REPORT INFORMATION
  Report Type: 
  Country: None (occurrence: None)
  Receive Date: 20091012
  Receipt Date: 20090724
  Transmission Date: 20100525
  Serious: No
  Sender: FDA-Public Use
  Company Number: US-ASTRAZENECA-2009UW14373

PATIENT
  Age: 43 Year
  Sex: Female
  Weight: 94.8 kg

DRUGS (13)
  1. SYMBICORT [Suspect]
     Indication: ASTHMA
     Dosage: 160/4.5 MG, 2 PUFFS
     Route: 055
  2. SYMBICORT [Suspect]
     Indication: CHRONIC OBSTRUCTIVE PULMONARY DISEASE
     Dosage: 160/4.5 MG, 2 PUFFS
     Route: 055
  3. TRAMADOL HCL [Concomitant]
  4. PROAIR HFA [Concomitant]
  5. SINGULAIR [Concomitant]
  6. VICODIN [Concomitant]
  7. LOVASTATIN [Concomitant]
  8. PEPCID [Concomitant]
  9. ASPIRIN [Concomitant]
  10. BACLOFEN [Concomitant]
  11. NEURONTIN [Concomitant]
  12. NASACORT [Concomitant]
  13. NITROGLYCERIN [Concomitant]

REACTIONS (5)
  - COUGH [None]
  - DRUG INEFFECTIVE [None]
  - DYSPNOEA [None]
  - INCREASED UPPER AIRWAY SECRETION [None]
  - PULMONARY CONGESTION [None]
